FAERS Safety Report 7969138-6 (Version None)
Quarter: 2011Q4

REPORT INFORMATION
  Report Type: 
  Country: None (occurrence: None)
  Receive Date: 20111209
  Receipt Date: 20111130
  Transmission Date: 20120403
  Serious: Yes (Hospitalization)
  Sender: FDA-Public Use
  Company Number: KR-ELI_LILLY_AND_COMPANY-KR201112000745

PATIENT
  Age: 76 Year
  Sex: Female

DRUGS (2)
  1. DAILY VITAMINS [Concomitant]
     Dosage: UNK
     Dates: start: 20111101
  2. HUMALOG MIX 50/50 [Suspect]
     Indication: TYPE 2 DIABETES MELLITUS
     Dosage: 8 U, TID
     Route: 058
     Dates: start: 20110901

REACTIONS (1)
  - BILE DUCT OBSTRUCTION [None]
